FAERS Safety Report 9256120 (Version 1)
Quarter: 2013Q2

REPORT INFORMATION
  Report Type: Spontaneous
  Country: US (occurrence: US)
  Receive Date: 20130425
  Receipt Date: 20130425
  Transmission Date: 20140414
  Serious: No
  Sender: FDA-Public Use
  Company Number: US-AMGEN-USASP2012034394

PATIENT
  Age: 75 Year
  Sex: Male
  Weight: 76.19 kg

DRUGS (12)
  1. NEULASTA [Suspect]
     Indication: CHEMOTHERAPY
     Dosage: 6 MG, Q3WK
     Route: 058
     Dates: start: 20120606
  2. CYTOXAN [Concomitant]
     Indication: LYMPHOMA
     Dosage: 1300 MG, Q3WK
     Route: 042
     Dates: start: 20120423, end: 20120605
  3. CYTOXAN [Concomitant]
     Indication: LEUKAEMIA
  4. ADRIAMYCIN                         /00330901/ [Concomitant]
     Indication: LYMPHOMA
     Dosage: 96 MG, Q3WK
     Route: 042
     Dates: start: 20120423, end: 20120605
  5. ADRIAMYCIN                         /00330901/ [Concomitant]
     Indication: LEUKAEMIA
  6. ONCOVIN [Concomitant]
  7. PREDNISONE [Concomitant]
     Indication: LYMPHOMA
     Dosage: 100 MG, Q3WK
     Route: 048
     Dates: start: 20120423, end: 20120605
  8. PREDNISONE [Concomitant]
     Indication: LEUKAEMIA
  9. RITUXAN [Concomitant]
     Indication: LEUKAEMIA
     Dosage: 720 MG, Q3WK
     Route: 042
     Dates: start: 20120423, end: 20120605
  10. RITUXAN [Concomitant]
     Indication: LYMPHOMA
  11. VINCRISTINE [Concomitant]
     Indication: LYMPHOMA
     Dosage: 2 MG, Q3WK
     Route: 042
     Dates: start: 20120423, end: 20120605
  12. VINCRISTINE [Concomitant]
     Indication: LEUKAEMIA

REACTIONS (1)
  - Pyrexia [Recovered/Resolved]
